FAERS Safety Report 7421151-3 (Version None)
Quarter: 2011Q2

REPORT INFORMATION
  Report Type: 
  Country: None (occurrence: None)
  Receive Date: 20110418
  Receipt Date: 20110408
  Transmission Date: 20111010
  Serious: Yes (Other)
  Sender: FDA-Public Use
  Company Number: NL-GENZYME-POMP-1001485

PATIENT

DRUGS (6)
  1. CALCIUM CARBONATE [Concomitant]
     Indication: OSTEOPOROSIS
     Dosage: 500 MG, UNK
  2. ACETYLCYSTEINE [Concomitant]
     Indication: PRODUCT USED FOR UNKNOWN INDICATION
     Dosage: 600 MG, UNK
  3. OMEPRAZOLE [Concomitant]
     Indication: NAUSEA
     Dosage: 20 MG, UNK
  4. BUMETANIDE [Concomitant]
     Indication: HYPERTENSION
     Dosage: 3 MG, UNK
  5. MYOZYME [Suspect]
     Indication: GLYCOGEN STORAGE DISEASE TYPE II
     Dosage: 20 MG/KG, Q2W
     Route: 042
     Dates: start: 20061221
  6. FERROFUMARAT [Concomitant]
     Indication: ANAEMIA
     Dosage: 600 MG, UNK

REACTIONS (1)
  - COLON CANCER [None]
